FAERS Safety Report 4431446-3 (Version None)
Quarter: 2004Q3

REPORT INFORMATION
  Report Type: 
  Country: None (occurrence: None)
  Receive Date: 20040824
  Receipt Date: 20040819
  Transmission Date: 20050211
  Serious: Yes (Life-Threatening)
  Sender: FDA-Public Use
  Company Number: 138517

PATIENT
  Age: 66 Year
  Sex: Female

DRUGS (4)
  1. LAMICTAL [Suspect]
     Indication: EPILEPSY
     Dosage: 75MG PER DAY
     Route: 048
     Dates: start: 20040101, end: 20040718
  2. FRISIUM [Concomitant]
     Indication: EPILEPSY
     Dosage: 20MG PER DAY
     Route: 048
     Dates: start: 20040626, end: 20040712
  3. DIPYRONE INJ [Concomitant]
     Dosage: 20DROP AS REQUIRED
     Route: 048
  4. PRIMIDONE [Concomitant]
     Indication: EPILEPSY
     Route: 048
     Dates: end: 20040101

REACTIONS (2)
  - ALVEOLITIS [None]
  - TOXIC EPIDERMAL NECROLYSIS [None]
